FAERS Safety Report 17489031 (Version 1)
Quarter: 2020Q1

REPORT INFORMATION
  Report Type: Spontaneous
  Country: US (occurrence: US)
  Receive Date: 20200221
  Receipt Date: 20200221
  Transmission Date: 20200409
  Serious: Yes (Death)
  Sender: FDA-Public Use
  Company Number: None

PATIENT
  Age: 48 Year
  Sex: Male

DRUGS (3)
  1. ONDANSETRON [Concomitant]
     Active Substance: ONDANSETRON
  2. TEMOZOLOMIDE. [Suspect]
     Active Substance: TEMOZOLOMIDE
     Indication: BRAIN NEOPLASM MALIGNANT
     Dosage: ?          OTHER FREQUENCY:QHS;?
     Route: 048
     Dates: start: 20190715
  3. TEMOZOLOMIDE 10MG [Suspect]
     Active Substance: TEMOZOLOMIDE
     Dosage: ?          OTHER FREQUENCY:QHS;?
     Route: 048
     Dates: start: 20190715

REACTIONS (1)
  - Death [None]

NARRATIVE: CASE EVENT DATE: 20200206
